FAERS Safety Report 12790226 (Version 1)
Quarter: 2016Q3

REPORT INFORMATION
  Report Type: Spontaneous
  Country: IT (occurrence: IT)
  Receive Date: 20160928
  Receipt Date: 20160928
  Transmission Date: 20161109
  Serious: Yes (Other)
  Sender: FDA-Public Use
  Company Number: IT-ALLERGAN-1669886US

PATIENT
  Age: 73 Year
  Sex: Female

DRUGS (6)
  1. TRUSOPT [Suspect]
     Active Substance: DORZOLAMIDE HYDROCHLORIDE
     Indication: OCULAR HYPERTENSION
  2. ACETAZOLAMIDE. [Suspect]
     Active Substance: ACETAZOLAMIDE
     Indication: OCULAR HYPERTENSION
     Route: 048
  3. BRIMONIDINE [Suspect]
     Active Substance: BRIMONIDINE TARTRATE
     Indication: GLAUCOMA
     Route: 061
  4. BRIMONIDINE [Suspect]
     Active Substance: BRIMONIDINE TARTRATE
     Indication: OCULAR HYPERTENSION
  5. BIMATOPROST UNK [Suspect]
     Active Substance: BIMATOPROST
     Indication: OCULAR HYPERTENSION
     Route: 061
  6. TIMOPTOL [Suspect]
     Active Substance: TIMOLOL
     Indication: OCULAR HYPERTENSION

REACTIONS (2)
  - Arteriovenous fistula [Unknown]
  - Glaucoma [Unknown]
